FAERS Safety Report 4323184-2 (Version None)
Quarter: 2004Q1

REPORT INFORMATION
  Report Type: 
  Country: None (occurrence: None)
  Receive Date: 20040322
  Receipt Date: 20040308
  Transmission Date: 20041129
  Serious: Yes (Life-Threatening, Hospitalization, Disabling)
  Sender: FDA-Public Use
  Company Number: 2003113622

PATIENT
  Age: 19 Year
  Sex: Female
  Weight: 50 kg

DRUGS (5)
  1. NEURONTIN [Suspect]
     Indication: DIABETIC NEUROPATHY
     Dosage: 1200 MG, TID, ORAL
     Route: 048
     Dates: start: 20030820, end: 20030907
  2. CARBAMAZEPINE [Suspect]
     Indication: DIABETIC NEUROPATHY
     Dosage: ORAL
     Route: 048
     Dates: start: 20030813, end: 20030907
  3. INSULIN HUMAN [Concomitant]
  4. INSULIN LISPRO [Concomitant]
  5. ACETAMINOPHEN [Concomitant]

REACTIONS (22)
  - COAGULOPATHY [None]
  - DEMYELINATION [None]
  - DERMATITIS EXFOLIATIVE [None]
  - DIABETIC NEUROPATHY [None]
  - EOSINOPHILIA [None]
  - EXANTHEM [None]
  - GENERALISED OEDEMA [None]
  - HAEMATOMA [None]
  - HEPATOCELLULAR DAMAGE [None]
  - HYPERSENSITIVITY [None]
  - HYPONATRAEMIA [None]
  - INTERNATIONAL NORMALISED RATIO INCREASED [None]
  - LEUKOCYTOSIS [None]
  - LYMPHOCYTE TRANSFORMATION TEST POSITIVE [None]
  - PETECHIAE [None]
  - PLATELET COUNT INCREASED [None]
  - PYREXIA [None]
  - RASH MACULO-PAPULAR [None]
  - SHIFT TO THE LEFT [None]
  - SINUS TACHYCARDIA [None]
  - SKIN TEST POSITIVE [None]
  - SWELLING [None]
